FAERS Safety Report 7679334-3 (Version None)
Quarter: 2011Q3

REPORT INFORMATION
  Report Type: 
  Country: None (occurrence: None)
  Receive Date: 20110812
  Receipt Date: 20110808
  Transmission Date: 20111222
  Serious: Yes (Death)
  Sender: FDA-Public Use
  Company Number: JP-ASTELLAS-2011JP004696

PATIENT
  Sex: Female
  Weight: 41.8 kg

DRUGS (9)
  1. ACTONEL [Concomitant]
     Indication: RHEUMATOID ARTHRITIS
     Dosage: 17.5 MG, WEEKLY
     Route: 048
     Dates: start: 20080828, end: 20110620
  2. CELECOXIB [Concomitant]
     Indication: RHEUMATOID ARTHRITIS
     Dosage: 200 MG, BID
     Route: 048
     Dates: start: 20091224, end: 20110620
  3. TENORMIN [Concomitant]
     Indication: HYPERTROPHIC CARDIOMYOPATHY
     Dosage: 25 MG, BID
     Route: 048
     Dates: start: 20090924, end: 20110620
  4. URSO 250 [Concomitant]
     Indication: HEPATIC FUNCTION ABNORMAL
     Dosage: 200 MG, TID
     Route: 048
     Dates: start: 20091109, end: 20110620
  5. ZANTAC [Concomitant]
     Indication: GASTRITIS
     Dosage: 150 MG, BID
     Route: 048
     Dates: start: 20101108, end: 20110620
  6. PROGRAF [Suspect]
     Indication: RHEUMATOID ARTHRITIS
     Dosage: 1.5 MG, UID/QD
     Route: 048
     Dates: start: 20070920, end: 20110620
  7. ACTEMRA [Suspect]
     Indication: RHEUMATOID ARTHRITIS
     Dosage: UNK
     Route: 041
     Dates: start: 20100802, end: 20110608
  8. CIBENOL [Concomitant]
     Indication: HYPERTROPHIC CARDIOMYOPATHY
     Dosage: 50 MG, UID/QD
     Route: 048
     Dates: start: 20091013, end: 20110620
  9. MUCOSTA [Concomitant]
     Indication: RHEUMATOID ARTHRITIS
     Dosage: 200 MG, BID
     Route: 048
     Dates: end: 20110620

REACTIONS (1)
  - STAPHYLOCOCCAL SEPSIS [None]
